FAERS Safety Report 15264442 (Version 1)
Quarter: 2018Q3

REPORT INFORMATION
  Report Type: Spontaneous
  Country: US (occurrence: US)
  Receive Date: 20180722
  Receipt Date: 20180722
  Transmission Date: 20181010
  Serious: Yes (Life-Threatening, Hospitalization)
  Sender: FDA-Public Use
  Company Number: None

PATIENT
  Sex: Female
  Weight: 72.45 kg

DRUGS (2)
  1. VALSARTAN. [Suspect]
     Active Substance: VALSARTAN
     Indication: HYPERTENSION
     Dosage: ?          QUANTITY:1 TABLET(S);?
     Route: 048
     Dates: start: 20150701, end: 20180719
  2. ELIQUIS [Concomitant]
     Active Substance: APIXABAN

REACTIONS (3)
  - Venous thrombosis limb [None]
  - Pulmonary thrombosis [None]
  - Adrenal gland cancer metastatic [None]
